FAERS Safety Report 25586415 (Version 1)
Quarter: 2025Q3

REPORT INFORMATION
  Report Type: Spontaneous
  Country: US (occurrence: None)
  Receive Date: 20250721
  Receipt Date: 20250721
  Transmission Date: 20251020
  Serious: Yes (Death)
  Sender: FDA-CTU
  Company Number: None

PATIENT
  Age: 77 Year
  Sex: Female
  Weight: 85.7 kg

DRUGS (6)
  1. COLLAGENASE SANTYL [Suspect]
     Active Substance: COLLAGENASE CLOSTRIDIUM HISTOLYTICUM
     Dates: end: 20250611
  2. POTASSIUM CHLORIDE [Suspect]
     Active Substance: POTASSIUM CHLORIDE
  3. FUROSEMIDE [Suspect]
     Active Substance: FUROSEMIDE
  4. CARVEDILOL [Suspect]
     Active Substance: CARVEDILOL
  5. ATORVASTATIN CALCIUM [Suspect]
     Active Substance: ATORVASTATIN CALCIUM
  6. ELIQUIS [Suspect]
     Active Substance: APIXABAN

REACTIONS (1)
  - Breast cancer [None]

NARRATIVE: CASE EVENT DATE: 20250708
